FAERS Safety Report 4364768-5 (Version None)
Quarter: 2004Q2

REPORT INFORMATION
  Report Type: 
  Country: None (occurrence: None)
  Receive Date: 20040526
  Receipt Date: 20031105
  Transmission Date: 20050107
  Serious: Yes (Hospitalization)
  Sender: FDA-Public Use
  Company Number: PHHO2003GB14116

PATIENT
  Age: 60 Year
  Sex: Male
  Weight: 113 kg

DRUGS (3)
  1. NEORAL [Suspect]
     Indication: MYOSITIS
     Dosage: UNKNOWN
     Route: 048
     Dates: start: 20030710
  2. NEORAL [Suspect]
     Dosage: REDUCED DOSE
  3. METHOTREXATE [Suspect]
     Indication: MYOSITIS
     Dosage: UNKNOWN

REACTIONS (4)
  - CHEST PAIN [None]
  - MUSCULOSKELETAL CHEST PAIN [None]
  - TROPONIN INCREASED [None]
  - VOMITING [None]
